FAERS Safety Report 11427375 (Version 1)
Quarter: 2015Q3

REPORT INFORMATION
  Report Type: Spontaneous
  Country: US (occurrence: US)
  Receive Date: 20150827
  Receipt Date: 20150827
  Transmission Date: 20151125
  Serious: No
  Sender: FDA-Public Use
  Company Number: US-SA-2015SA087931

PATIENT
  Sex: Male

DRUGS (2)
  1. SOLU-MEDROL [Concomitant]
     Active Substance: METHYLPREDNISOLONE SODIUM SUCCINATE
     Indication: PREMEDICATION
  2. FABRAZYME [Suspect]
     Active Substance: AGALSIDASE BETA
     Route: 041

REACTIONS (3)
  - Gastrointestinal disorder [Unknown]
  - Vomiting [Unknown]
  - Nausea [Unknown]
